FAERS Safety Report 19668532 (Version 1)
Quarter: 2021Q3

REPORT INFORMATION
  Report Type: Spontaneous
  Country: HR (occurrence: HR)
  Receive Date: 20210806
  Receipt Date: 20210806
  Transmission Date: 20211014
  Serious: Yes (Other)
  Sender: FDA-Public Use
  Company Number: HR-PFIZER INC-202100948395

PATIENT
  Sex: Female

DRUGS (5)
  1. ALPRAZOLAM. [Suspect]
     Active Substance: ALPRAZOLAM
     Dosage: 30 MG, 1X/DAY
     Route: 048
     Dates: start: 20210417, end: 20210417
  2. IBUPROFENUM [Suspect]
     Active Substance: IBUPROFEN
     Dosage: 8000 MG, 1X/DAY
     Route: 048
     Dates: start: 20210417, end: 20210417
  3. METRONIDAZOLUM [Suspect]
     Active Substance: METRONIDAZOLE
     Dosage: 3 DF, 1X/DAY (1 DF = 1 TABLET)
     Route: 048
     Dates: start: 20210417, end: 20210417
  4. DIAZEPAMUM [Suspect]
     Active Substance: DIAZEPAM
     Dosage: 10 MG, 1X/DAY
     Route: 048
     Dates: start: 20210417, end: 20210417
  5. AMOKSICILIN [Suspect]
     Active Substance: AMOXICILLIN
     Dosage: 3 DF, 1X/DAY (1 DF = 1 TABLET)
     Route: 048
     Dates: start: 20210417, end: 20210417

REACTIONS (3)
  - Intentional overdose [Unknown]
  - Somnolence [Unknown]
  - Suicide attempt [Unknown]

NARRATIVE: CASE EVENT DATE: 20210417
